FAERS Safety Report 9948030 (Version 1)
Quarter: 2014Q1

REPORT INFORMATION
  Report Type: Report from Study
  Country: US (occurrence: US)
  Receive Date: 20140303
  Receipt Date: 20140303
  Transmission Date: 20141002
  Serious: No
  Sender: FDA-Public Use
  Company Number: US-ABBVIE-13P-163-1055936-00

PATIENT
  Age: 59 Year
  Sex: Female

DRUGS (4)
  1. HUMIRA [Suspect]
     Indication: COLITIS ULCERATIVE
     Route: 058
     Dates: start: 20121215
  2. MERCAPTOPURINE [Concomitant]
     Indication: RECTAL HAEMORRHAGE
     Route: 048
  3. JOSTOVEN [Concomitant]
     Indication: PRODUCT USED FOR UNKNOWN INDICATION
     Dosage: 5 MG EVERY OTHER DAY AND 2-5MG THE OPPOSITE DAYS
     Route: 048
  4. GUMMY CALCIUM [Concomitant]
     Indication: BONE DISORDER
     Route: 048

REACTIONS (2)
  - Injection site haemorrhage [Recovering/Resolving]
  - Injection site swelling [Recovering/Resolving]
